FAERS Safety Report 6208891-9 (Version None)
Quarter: 2009Q2

REPORT INFORMATION
  Report Type: 
  Country: None (occurrence: None)
  Receive Date: 20090529
  Receipt Date: 20090526
  Transmission Date: 20091009
  Serious: Yes (Hospitalization)
  Sender: FDA-Public Use
  Company Number: B0575646A

PATIENT
  Sex: Female

DRUGS (1)
  1. VALACYCLOVIR HCL [Suspect]
     Indication: DRUG USE FOR UNKNOWN INDICATION
     Dosage: 500MG TWICE PER DAY
     Route: 048
     Dates: start: 20090420, end: 20090420

REACTIONS (4)
  - AGITATION [None]
  - CONFUSIONAL STATE [None]
  - CSF TEST ABNORMAL [None]
  - INCOHERENT [None]
